FAERS Safety Report 7169973-0 (Version None)
Quarter: 2010Q4

REPORT INFORMATION
  Report Type: 
  Country: None (occurrence: None)
  Receive Date: 20101217
  Receipt Date: 20101209
  Transmission Date: 20110411
  Serious: Yes (Hospitalization)
  Sender: FDA-Public Use
  Company Number: US-CUBIST-2010S1001772

PATIENT
  Age: 31 Year
  Sex: Male

DRUGS (7)
  1. CUBICIN [Suspect]
     Indication: ABDOMINAL ABSCESS
  2. CISPLATIN [Concomitant]
     Indication: CHEMOTHERAPY
     Dates: start: 20100201
  3. GEMCITABINE [Concomitant]
     Indication: CHEMOTHERAPY
     Dates: start: 20100201
  4. VANCOMYCIN [Concomitant]
     Indication: ABDOMINAL ABSCESS
  5. LINEZOLID [Concomitant]
     Indication: ABDOMINAL ABSCESS
  6. PIPERACILLIN W/TAZOBACTAM [Concomitant]
     Indication: ABDOMINAL ABSCESS
  7. CASPOFUNGIN [Concomitant]
     Indication: ABDOMINAL ABSCESS

REACTIONS (1)
  - GASTROINTESTINAL HAEMORRHAGE [None]
